FAERS Safety Report 13024137 (Version 1)
Quarter: 2016Q4

REPORT INFORMATION
  Report Type: Spontaneous
  Country: IN (occurrence: IN)
  Receive Date: 20161213
  Receipt Date: 20161213
  Transmission Date: 20170207
  Serious: Yes (Other)
  Sender: FDA-Public Use
  Company Number: IN-MYLANLABS-2016M1055223

PATIENT

DRUGS (3)
  1. GENTAMICIN. [Concomitant]
     Active Substance: GENTAMICIN
     Indication: STREPTOCOCCAL ENDOCARDITIS
     Dosage: FOR THE TWO WEEKS
     Route: 042
  2. LINEZOLID. [Suspect]
     Active Substance: LINEZOLID
     Indication: STREPTOCOCCAL ENDOCARDITIS
     Dosage: FOR 5 WEEKS
     Route: 065
  3. CEFTRIAXONE. [Suspect]
     Active Substance: CEFTRIAXONE
     Indication: STREPTOCOCCAL ENDOCARDITIS
     Dosage: 1G FOR 5 WEEKS
     Route: 042

REACTIONS (1)
  - Haemolytic anaemia [Recovered/Resolved]
